FAERS Safety Report 16646536 (Version 2)
Quarter: 2019Q3

REPORT INFORMATION
  Report Type: Spontaneous
  Country: JP (occurrence: JP)
  Receive Date: 20190730
  Receipt Date: 20190923
  Transmission Date: 20191004
  Serious: Yes (Other)
  Sender: FDA-Public Use
  Company Number: JP-009507513-1907JPN015923

PATIENT
  Age: 83 Year
  Sex: Female

DRUGS (1)
  1. FIDAXOMICIN [Suspect]
     Active Substance: FIDAXOMICIN
     Indication: PSEUDOMEMBRANOUS COLITIS
     Dosage: UNK, UNKNOWN FREQ.
     Route: 048

REACTIONS (1)
  - Pseudomembranous colitis [Unknown]
